FAERS Safety Report 22956999 (Version 7)
Quarter: 2024Q1

REPORT INFORMATION
  Report Type: Report from Study
  Country: CO (occurrence: CO)
  Receive Date: 20230919
  Receipt Date: 20240327
  Transmission Date: 20240410
  Serious: Yes (Death, Hospitalization)
  Sender: FDA-Public Use
  Company Number: CO-002147023-NVSC2023CO200879

PATIENT
  Age: 57 Year
  Sex: Male
  Weight: 78.6 kg

DRUGS (4)
  1. COSENTYX [Suspect]
     Active Substance: SECUKINUMAB
     Indication: Psoriatic arthropathy
     Dosage: 300 MG, QMO
     Route: 058
     Dates: start: 20181010
  2. COSENTYX [Suspect]
     Active Substance: SECUKINUMAB
     Indication: Rheumatoid arthritis
     Dosage: 300 MG, QMO
     Route: 058
     Dates: start: 20191029, end: 202307
  3. COSENTYX [Suspect]
     Active Substance: SECUKINUMAB
     Dosage: UNK
     Route: 065
     Dates: start: 20230710
  4. LOSARTAN [Suspect]
     Active Substance: LOSARTAN
     Indication: Hypertension
     Dosage: 50 MG, BID (IN THE MORNING AND AT NIGHT, STARTED MORE THAN 20 YEARS AGO)
     Route: 065

REACTIONS (9)
  - Death [Fatal]
  - Muscle atrophy [Recovered/Resolved]
  - Blood creatinine increased [Recovered/Resolved]
  - Renal disorder [Unknown]
  - Muscular weakness [Unknown]
  - Device related infection [Recovered/Resolved]
  - Deep vein thrombosis [Recovered/Resolved]
  - Mobility decreased [Recovering/Resolving]
  - Product use in unapproved indication [Unknown]

NARRATIVE: CASE EVENT DATE: 20230729
